FAERS Safety Report 18595824 (Version 8)
Quarter: 2023Q4

REPORT INFORMATION
  Report Type: Report from Study
  Country: US (occurrence: US)
  Receive Date: 20201209
  Receipt Date: 20231031
  Transmission Date: 20240109
  Serious: Yes (Disabling, Other)
  Sender: FDA-Public Use
  Company Number: US-TAKEDA-2020TUS046007

PATIENT
  Sex: Male
  Weight: 84 kg

DRUGS (2)
  1. VEDOLIZUMAB [Suspect]
     Active Substance: VEDOLIZUMAB
     Indication: Crohn^s disease
     Dosage: 300 MILLIGRAM
     Route: 042
     Dates: start: 20200916
  2. VEDOLIZUMAB [Suspect]
     Active Substance: VEDOLIZUMAB
     Indication: Colitis ulcerative
     Dosage: 300 MILLIGRAM, Q6WEEKS
     Route: 042

REACTIONS (20)
  - Neuropathy peripheral [Unknown]
  - Disability [Unknown]
  - Crohn^s disease [Unknown]
  - Suicidal ideation [Unknown]
  - Cataract [Unknown]
  - Abdominal pain upper [Unknown]
  - Diarrhoea [Unknown]
  - Dry throat [Unknown]
  - Malaise [Unknown]
  - Illness [Unknown]
  - Visual impairment [Unknown]
  - Lung disorder [Unknown]
  - COVID-19 [Unknown]
  - Memory impairment [Unknown]
  - Corneal disorder [Unknown]
  - Off label use [Unknown]
  - Abdominal pain [Unknown]
  - Flatulence [Unknown]
  - Cough [Unknown]
  - Fatigue [Unknown]
